FAERS Safety Report 16874041 (Version 4)
Quarter: 2023Q1

REPORT INFORMATION
  Report Type: Spontaneous
  Country: GR (occurrence: GR)
  Receive Date: 20191001
  Receipt Date: 20230330
  Transmission Date: 20230418
  Serious: Yes (Hospitalization, Other)
  Sender: FDA-Public Use
  Company Number: PHHY2019GR226415

PATIENT
  Sex: Female
  Weight: 1.67 kg

DRUGS (9)
  1. FILGRASTIM [Suspect]
     Active Substance: FILGRASTIM
     Indication: Foetal exposure during pregnancy
     Dosage: MATERNAL DOSE: UNK
     Route: 064
  2. DEXAMETHASONE [Suspect]
     Active Substance: DEXAMETHASONE
     Indication: Foetal exposure during pregnancy
     Dosage: MATERNAL DOSE: 4 MG, QD
     Route: 064
  3. DEXAMETHASONE [Suspect]
     Active Substance: DEXAMETHASONE
     Dosage: MATERNAL DOSE: 8 MG, QD
     Route: 064
  4. DEXAMETHASONE [Suspect]
     Active Substance: DEXAMETHASONE
     Dosage: MATERNAL DOSE12 MG, QD (LOW DOSE)
     Route: 064
  5. DEXAMETHASONE [Suspect]
     Active Substance: DEXAMETHASONE
     Dosage: MATERNAL DOSE: 20 MG, QD
     Route: 064
  6. DEXAMETHASONE [Suspect]
     Active Substance: DEXAMETHASONE
     Dosage: MATERNAL DOSE 20 MG, QD (ON 6, 7 AND 13, 16 DAYS)
     Route: 064
  7. ALLOPURINOL [Suspect]
     Active Substance: ALLOPURINOL
     Indication: Foetal exposure during pregnancy
     Dosage: MATERNAL DOSE: 300 MG, BID
     Route: 064
  8. DOXORUBICIN HYDROCHLORIDE [Suspect]
     Active Substance: DOXORUBICIN HYDROCHLORIDE
     Indication: Foetal exposure during pregnancy
     Dosage: 30 MG/M2 DAY 6, 13, 20, 28
     Route: 064
  9. VINCRISTINE [Suspect]
     Active Substance: VINCRISTINE
     Indication: Foetal exposure during pregnancy
     Dosage: MATERNAL DOSE :2 MG DAY 6,13 AND 20
     Route: 064

REACTIONS (11)
  - Neonatal respiratory distress [Unknown]
  - Cardiomegaly [Recovered/Resolved]
  - Pericardial effusion [Recovered/Resolved]
  - Cardiac failure [Recovered/Resolved]
  - Aneurysm [Recovered/Resolved]
  - Cardiotoxicity [Recovered/Resolved]
  - Premature baby [Unknown]
  - Cardiac dysfunction [Unknown]
  - Dyspnoea [Recovered/Resolved]
  - Low birth weight baby [Unknown]
  - Foetal exposure during pregnancy [Unknown]
